APPROVED DRUG PRODUCT: MUCINEX 12HR COLD & FEVER MULTI-SYMPTOM
Active Ingredient: DEXTROMETHORPHAN HYDROBROMIDE; GUAIFENESIN; NAPROXEN SODIUM
Strength: 30MG;600MG;110MG
Dosage Form/Route: TABLET, EXTENDED RELEASE;ORAL
Application: N217338 | Product #001
Applicant: RB HEALTH US LLC
Approved: Dec 22, 2025 | RLD: Yes | RS: Yes | Type: OTC